FAERS Safety Report 18756202 (Version 1)
Quarter: 2021Q1

REPORT INFORMATION
  Report Type: Spontaneous
  Country: US (occurrence: US)
  Receive Date: 20210116
  Receipt Date: 20210116
  Transmission Date: 20210419
  Serious: Yes (Life-Threatening, Other)
  Sender: FDA-Public Use
  Company Number: None

PATIENT
  Age: 73 Year
  Sex: Male
  Weight: 81 kg

DRUGS (11)
  1. OCTAGAM IMMUNE GLOBULIN (HUMAN) [Suspect]
     Active Substance: HUMAN IMMUNOGLOBULIN G
     Indication: PRIMARY IMMUNODEFICIENCY SYNDROME
     Dosage: ?          QUANTITY:500 5 LITERS @ 10%;OTHER FREQUENCY:MONTHLY INFUSION;?
     Route: 042
     Dates: start: 20061130, end: 20210115
  2. PSEUDOEPHEDERINE [Concomitant]
  3. TAMSULOCIN [Concomitant]
  4. AMLODAPINE [Concomitant]
  5. TYLENOL [Concomitant]
     Active Substance: ACETAMINOPHEN
  6. ACYCLOVIE [Concomitant]
  7. OCTAGAM IMMUNE GLOBULIN (HUMAN) [Suspect]
     Active Substance: HUMAN IMMUNOGLOBULIN G
     Indication: HYPOGAMMAGLOBULINAEMIA
     Dosage: ?          QUANTITY:500 5 LITERS @ 10%;OTHER FREQUENCY:MONTHLY INFUSION;?
     Route: 042
     Dates: start: 20061130, end: 20210115
  8. TORSEMIDE. [Concomitant]
     Active Substance: TORSEMIDE
  9. TESTOSTERONE. [Concomitant]
     Active Substance: TESTOSTERONE
  10. ALLOPURINOL. [Concomitant]
     Active Substance: ALLOPURINOL
  11. VITAMINS AND MINERALS [Concomitant]

REACTIONS (2)
  - Product contamination microbial [None]
  - Q fever [None]

NARRATIVE: CASE EVENT DATE: 20190805
